FAERS Safety Report 5766755-9 (Version None)
Quarter: 2008Q2

REPORT INFORMATION
  Report Type: 
  Country: None (occurrence: None)
  Receive Date: 20080612
  Receipt Date: 20080603
  Transmission Date: 20081010
  Serious: Yes (Hospitalization)
  Sender: FDA-Public Use
  Company Number: JP-ALLERGAN-0807048US

PATIENT
  Sex: Male

DRUGS (2)
  1. ALESION SYRUP [Suspect]
     Indication: URTICARIA
     Dosage: 5 MG, QD
     Route: 048
     Dates: start: 20080528
  2. RESTAMIN [Concomitant]
     Indication: URTICARIA
     Dosage: 20 MG, UNK
     Route: 062
     Dates: start: 20080528

REACTIONS (1)
  - ERYTHEMA MULTIFORME [None]
